FAERS Safety Report 7832197-5 (Version None)
Quarter: 2011Q4

REPORT INFORMATION
  Report Type: 
  Country: None (occurrence: None)
  Receive Date: 20111022
  Receipt Date: 20100827
  Transmission Date: 20120403
  Serious: No
  Sender: FDA-Public Use
  Company Number: US-BAYER-201032899NA

PATIENT
  Sex: Male
  Weight: 102.4 kg

DRUGS (2)
  1. ULTRAVIST (PHARMACY BULK) [Suspect]
     Indication: EYE DISORDER
  2. ULTRAVIST (PHARMACY BULK) [Suspect]
     Indication: COMPUTERISED TOMOGRAM HEAD
     Dosage: 100 CC , LEFT ANTICUBITAL WITH POWER INJECTOR@2CC/SEC
     Route: 042
     Dates: start: 20100827, end: 20100827

REACTIONS (4)
  - THROAT IRRITATION [None]
  - OROPHARYNGEAL DISCOMFORT [None]
  - EYE PRURITUS [None]
  - NASAL CONGESTION [None]
